FAERS Safety Report 12725085 (Version 2)
Quarter: 2016Q4

REPORT INFORMATION
  Report Type: Spontaneous
  Country: FR (occurrence: FR)
  Receive Date: 20160908
  Receipt Date: 20161123
  Transmission Date: 20170207
  Serious: Yes (Other)
  Sender: FDA-Public Use
  Company Number: PHHY2016FR121233

PATIENT
  Age: 78 Year
  Sex: Male

DRUGS (1)
  1. TASIGNA [Suspect]
     Active Substance: NILOTINIB
     Indication: CHRONIC MYELOID LEUKAEMIA
     Dosage: 02 DF, QD
     Route: 065

REACTIONS (6)
  - Gastrointestinal carcinoma [Unknown]
  - General physical condition abnormal [Unknown]
  - Mass [Unknown]
  - Metastasis [Unknown]
  - Abdominal pain [Unknown]
  - Second primary malignancy [Unknown]

NARRATIVE: CASE EVENT DATE: 201608
